FAERS Safety Report 6940768-3 (Version None)
Quarter: 2010Q3

REPORT INFORMATION
  Report Type: 
  Country: None (occurrence: None)
  Receive Date: 20100824
  Receipt Date: 20100824
  Transmission Date: 20110219
  Serious: Yes (Other)
  Sender: FDA-Public Use
  Company Number: None

PATIENT
  Sex: Female
  Weight: 34.0198 kg

DRUGS (1)
  1. SINGULAIR [Suspect]
     Indication: MULTIPLE ALLERGIES
     Dosage: 5MG 1 TABLET AT BEDTIM PO
     Route: 048
     Dates: start: 20070501, end: 20100801

REACTIONS (2)
  - ANXIETY [None]
  - DEPRESSION [None]
